FAERS Safety Report 24152768 (Version 3)
Quarter: 2024Q4

REPORT INFORMATION
  Report Type: Spontaneous
  Country: US (occurrence: US)
  Receive Date: 20240730
  Receipt Date: 20241125
  Transmission Date: 20250115
  Serious: No
  Sender: SANOFI AVENTIS
  Company Number: US-SA-SAC20240724000372

PATIENT
  Age: 54 Year
  Sex: Female

DRUGS (1)
  1. DUPIXENT [Suspect]
     Active Substance: DUPILUMAB
     Indication: Dermatitis atopic
     Dosage: 300 MG, QOW
     Route: 058

REACTIONS (10)
  - Skin haemorrhage [Unknown]
  - Skin weeping [Unknown]
  - Muscle spasms [Unknown]
  - Pain [Unknown]
  - Dry skin [Recovering/Resolving]
  - Scratch [Unknown]
  - Sleep disorder due to a general medical condition [Unknown]
  - Skin exfoliation [Unknown]
  - Pruritus [Recovering/Resolving]
  - Injection site vesicles [Recovering/Resolving]

NARRATIVE: CASE EVENT DATE: 20240701
